FAERS Safety Report 24095661 (Version 5)
Quarter: 2025Q3

REPORT INFORMATION
  Report Type: Spontaneous
  Country: US (occurrence: US)
  Receive Date: 20240716
  Receipt Date: 20250816
  Transmission Date: 20251021
  Serious: Yes (Other)
  Sender: ALEXION PHARMACEUTICALS
  Company Number: 2024A157779

PATIENT
  Age: 86 Year
  Sex: Female

DRUGS (1)
  1. BYDUREON BCISE [Suspect]
     Active Substance: EXENATIDE

REACTIONS (3)
  - Product administration interrupted [Unknown]
  - Visual impairment [Unknown]
  - Dementia [Unknown]

NARRATIVE: CASE EVENT DATE: 20240708
